FAERS Safety Report 9430397 (Version 1)
Quarter: 2013Q3

REPORT INFORMATION
  Report Type: Spontaneous
  Country: US (occurrence: US)
  Receive Date: 20130730
  Receipt Date: 20130730
  Transmission Date: 20140515
  Serious: No
  Sender: FDA-Public Use
  Company Number: US-ABBOTT-13P-163-1085064-00

PATIENT
  Age: 86 Year
  Sex: Female

DRUGS (3)
  1. NIASPAN (COATED) [Suspect]
     Indication: BLOOD CHOLESTEROL INCREASED
     Dates: start: 20130501, end: 20130501
  2. UNNAMED MEDICATION [Concomitant]
     Indication: HYPERTENSION
  3. UNNAMED MEDICATION [Concomitant]
     Indication: BLOOD CHOLESTEROL INCREASED

REACTIONS (4)
  - Hypoaesthesia oral [Unknown]
  - Lip swelling [Unknown]
  - Local swelling [Unknown]
  - Skin burning sensation [Unknown]
